FAERS Safety Report 24539836 (Version 1)
Quarter: 2024Q4

REPORT INFORMATION
  Report Type: Spontaneous
  Country: US (occurrence: None)
  Receive Date: 20241023
  Receipt Date: 20241023
  Transmission Date: 20250114
  Serious: Yes (Hospitalization)
  Sender: Public
  Company Number: None

PATIENT
  Age: 67 Year
  Sex: Male
  Weight: 89.6 kg

DRUGS (2)
  1. APALUTAMIDE [Suspect]
     Active Substance: APALUTAMIDE
     Dates: end: 20220728
  2. LEUPROLIDE ACETATE [Suspect]
     Active Substance: LEUPROLIDE ACETATE
     Dates: end: 20220428

REACTIONS (6)
  - Haematuria [None]
  - Cystitis radiation [None]
  - Prostatomegaly [None]
  - Bladder mass [None]
  - Thrombosis [None]
  - Haemoglobin decreased [None]

NARRATIVE: CASE EVENT DATE: 20240812
